FAERS Safety Report 7765036-1 (Version None)
Quarter: 2011Q3

REPORT INFORMATION
  Report Type: 
  Country: None (occurrence: None)
  Receive Date: 20110916
  Receipt Date: 20110908
  Transmission Date: 20111222
  Serious: Yes (Other)
  Sender: FDA-Public Use
  Company Number: 2010SP003304

PATIENT
  Age: 27 Year
  Sex: Female
  Weight: 90.7194 kg

DRUGS (2)
  1. NUVARING [Suspect]
     Indication: MENORRHAGIA
     Dates: start: 20030501, end: 20080101
  2. NUVARING [Suspect]
     Indication: MENSTRUAL DISORDER
     Dates: start: 20030501, end: 20080101

REACTIONS (36)
  - FEELING ABNORMAL [None]
  - CHEST PAIN [None]
  - GASTRITIS [None]
  - PHARYNGITIS [None]
  - TRANSIENT ISCHAEMIC ATTACK [None]
  - NAUSEA [None]
  - RHINORRHOEA [None]
  - VOMITING [None]
  - DIARRHOEA [None]
  - POLYCYSTIC OVARIES [None]
  - CEREBROVASCULAR ACCIDENT [None]
  - ABDOMINAL PAIN UPPER [None]
  - MIGRAINE [None]
  - SMEAR CERVIX ABNORMAL [None]
  - HUMAN PAPILLOMA VIRUS TEST POSITIVE [None]
  - VERTIGO POSITIONAL [None]
  - OVARIAN CYST RUPTURED [None]
  - CHOLESTEROSIS [None]
  - CAESAREAN SECTION [None]
  - DEPRESSION [None]
  - BLOODY DISCHARGE [None]
  - PELVIC PAIN [None]
  - HYPOAESTHESIA [None]
  - MATERNAL EXPOSURE BEFORE PREGNANCY [None]
  - BRONCHITIS [None]
  - HYPERTENSION [None]
  - TREMOR [None]
  - INFECTION [None]
  - WOUND DEHISCENCE [None]
  - CANDIDIASIS [None]
  - ASTHENIA [None]
  - DYSMENORRHOEA [None]
  - HEPATIC STEATOSIS [None]
  - MALAISE [None]
  - CHOLECYSTITIS CHRONIC [None]
  - HIDRADENITIS [None]
